FAERS Safety Report 23590995 (Version 1)
Quarter: 2024Q1

REPORT INFORMATION
  Report Type: Other
  Country: US (occurrence: None)
  Receive Date: 20240304
  Receipt Date: 20240304
  Transmission Date: 20240409
  Serious: Yes (Hospitalization, Other)
  Sender: FDA-Public Use
  Company Number: US-ROCHE-3515771

PATIENT
  Age: 61 Year
  Sex: Male

DRUGS (1)
  1. RITUXAN [Suspect]
     Active Substance: RITUXIMAB
     Indication: Mantle cell lymphoma
     Dosage: 2 DOSES
     Route: 065
     Dates: start: 202112, end: 202201

REACTIONS (5)
  - Acute respiratory failure [Unknown]
  - Pulmonary embolism [Unknown]
  - COVID-19 [Unknown]
  - Hypogammaglobulinaemia [Unknown]
  - Organising pneumonia [Unknown]

NARRATIVE: CASE EVENT DATE: 20220801
